FAERS Safety Report 12676668 (Version 3)
Quarter: 2016Q3

REPORT INFORMATION
  Report Type: Spontaneous
  Country: CH (occurrence: SE)
  Receive Date: 20160823
  Receipt Date: 20160823
  Transmission Date: 20161109
  Serious: Yes (Hospitalization)
  Sender: FDA-Public Use
  Company Number: CH-LPDUSPRD-20160719

PATIENT
  Age: 22 Year
  Sex: Male

DRUGS (3)
  1. FERINJECT [Suspect]
     Active Substance: FERRIC CARBOXYMALTOSE
     Dosage: 1000MG
     Route: 041
     Dates: start: 20160224, end: 20160224
  2. ASACOL [Concomitant]
     Active Substance: MESALAMINE
  3. IMURAN [Concomitant]
     Active Substance: AZATHIOPRINE

REACTIONS (5)
  - Headache [Recovered/Resolved]
  - Pyrexia [Recovered/Resolved]
  - Chills [Recovered/Resolved]
  - Malaise [Recovered/Resolved]
  - Pain [Recovered/Resolved]

NARRATIVE: CASE EVENT DATE: 2011
